FAERS Safety Report 14186639 (Version 1)
Quarter: 2017Q4

REPORT INFORMATION
  Report Type: Spontaneous
  Country: US (occurrence: US)
  Receive Date: 20171114
  Receipt Date: 20171114
  Transmission Date: 20180321
  Serious: Yes (Hospitalization, Other)
  Sender: FDA-Public Use
  Company Number: US-CIPLA LTD.-2017US19823

PATIENT

DRUGS (2)
  1. CARBOPLATIN. [Suspect]
     Active Substance: CARBOPLATIN
     Indication: HEAD AND NECK CANCER
     Dosage: UNK
     Route: 065
  2. DOCUSATE SODIUM. [Concomitant]
     Active Substance: DOCUSATE SODIUM
     Indication: HEAD AND NECK CANCER
     Dosage: UNK
     Route: 065

REACTIONS (4)
  - Femur fracture [Unknown]
  - Renal tubular injury [Unknown]
  - Hypomagnesaemia [Unknown]
  - Syncope [Unknown]
